FAERS Safety Report 25204884 (Version 1)
Quarter: 2025Q2

REPORT INFORMATION
  Report Type: Spontaneous
  Country: NO (occurrence: NO)
  Receive Date: 20250416
  Receipt Date: 20250416
  Transmission Date: 20250716
  Serious: Yes (Other)
  Sender: JOHNSON AND JOHNSON
  Company Number: None

PATIENT
  Age: 49 Year
  Sex: Male

DRUGS (1)
  1. STELARA [Suspect]
     Active Substance: USTEKINUMAB
     Indication: Crohn^s disease
     Dosage: THE FREQUENCY TIME IS ALSO REPORTED TO HAVE BEEN EVERY 12. WEEKS, BUT THIS IS NOT FUTHER SPECIFIED.
     Route: 058
     Dates: start: 20200428, end: 20250408

REACTIONS (3)
  - Gait disturbance [Recovering/Resolving]
  - Clonus [Recovering/Resolving]
  - Muscle spasticity [Recovering/Resolving]

NARRATIVE: CASE EVENT DATE: 20200515
